FAERS Safety Report 9369479 (Version 1)
Quarter: 2013Q2

REPORT INFORMATION
  Report Type: Spontaneous
  Country: US (occurrence: US)
  Receive Date: 20130626
  Receipt Date: 20130626
  Transmission Date: 20140414
  Serious: No
  Sender: FDA-Public Use
  Company Number: US-PFIZER INC-2013189169

PATIENT
  Age: 70 Year
  Sex: Female
  Weight: 56.69 kg

DRUGS (2)
  1. LATANOPROST [Suspect]
     Indication: GLAUCOMA
     Dosage: UNK, 1X/DAY
     Route: 047
     Dates: start: 2011
  2. LATANOPROST [Suspect]
     Indication: INTRAOCULAR PRESSURE INCREASED

REACTIONS (1)
  - Eye irritation [Unknown]
